FAERS Safety Report 24930179 (Version 1)
Quarter: 2025Q1

REPORT INFORMATION
  Report Type: Spontaneous
  Country: US (occurrence: US)
  Receive Date: 20250205
  Receipt Date: 20250205
  Transmission Date: 20250409
  Serious: No
  Sender: TAIHO ONCOLOGY INC
  Company Number: US-Taiho Oncology Inc-2025-001067

PATIENT
  Sex: Male
  Weight: 64.18 kg

DRUGS (1)
  1. LONSURF [Suspect]
     Active Substance: TIPIRACIL HYDROCHLORIDE\TRIFLURIDINE
     Indication: Colorectal cancer metastatic
     Dosage: CYCLE UNKNOWN?FORM STRENGTH 15 MG AND 20 MG.
     Route: 048

REACTIONS (3)
  - Pain [Unknown]
  - Confusional state [Unknown]
  - Inappropriate schedule of product administration [Unknown]
